FAERS Safety Report 7550922-8 (Version None)
Quarter: 2011Q2

REPORT INFORMATION
  Report Type: 
  Country: None (occurrence: None)
  Receive Date: 20110616
  Receipt Date: 20110613
  Transmission Date: 20111010
  Serious: Yes (Other)
  Sender: FDA-Public Use
  Company Number: US-AMGEN-USASP2011030361

PATIENT
  Age: 64 Year
  Sex: Male

DRUGS (1)
  1. NPLATE [Suspect]
     Indication: IDIOPATHIC THROMBOCYTOPENIC PURPURA
     Dosage: 205 A?G, UNK
     Dates: start: 20101209, end: 20101215

REACTIONS (2)
  - ACUTE MYELOID LEUKAEMIA [None]
  - CHRONIC MYELOMONOCYTIC LEUKAEMIA [None]
